FAERS Safety Report 12470247 (Version 1)
Quarter: 2016Q2

REPORT INFORMATION
  Report Type: Spontaneous
  Country: FR (occurrence: FR)
  Receive Date: 20160616
  Receipt Date: 20160616
  Transmission Date: 20160815
  Serious: Yes (Other)
  Sender: FDA-Public Use
  Company Number: FR-AMGEN-FRASP2016074355

PATIENT
  Age: 26 Year
  Sex: Female

DRUGS (3)
  1. XGEVA [Suspect]
     Active Substance: DENOSUMAB
     Indication: ANEURYSMAL BONE CYST
     Dosage: 120 MG, QMO
     Route: 058
  2. VITAMIN D [Concomitant]
     Active Substance: CHOLECALCIFEROL
     Dosage: UNK
  3. CALCIUM [Concomitant]
     Active Substance: CALCIUM
     Dosage: UNK

REACTIONS (7)
  - Maternal exposure during pregnancy [Unknown]
  - Spinal cord compression [Unknown]
  - Bone giant cell tumour [Unknown]
  - Caesarean section [Unknown]
  - Cervical radiculopathy [Recovering/Resolving]
  - Paraparesis [Unknown]
  - Off label use [Unknown]
